FAERS Safety Report 8200979-6 (Version None)
Quarter: 2012Q1

REPORT INFORMATION
  Report Type: 
  Country: None (occurrence: None)
  Receive Date: 20120312
  Receipt Date: 20120305
  Transmission Date: 20120608
  Serious: Yes (Hospitalization)
  Sender: FDA-Public Use
  Company Number: IE-MEDIMMUNE-MEDI-0014777

PATIENT
  Sex: Female

DRUGS (3)
  1. FERROUS SULFATE TAB [Concomitant]
  2. SYNAGIS [Suspect]
     Route: 030
     Dates: start: 20111001, end: 20111001
  3. KAPSOVIT [Concomitant]

REACTIONS (3)
  - BRONCHIOLITIS [None]
  - VOMITING [None]
  - DIARRHOEA [None]
